FAERS Safety Report 5081197-X (Version None)
Quarter: 2006Q3

REPORT INFORMATION
  Report Type: 
  Country: None (occurrence: None)
  Receive Date: 20060810
  Receipt Date: 20060727
  Transmission Date: 20061208
  Serious: Yes (Life-Threatening, Hospitalization)
  Sender: FDA-Public Use
  Company Number: POMP-10769

PATIENT
  Age: 17 Month
  Sex: Female
  Weight: 10.01 kg

DRUGS (2)
  1. MYOZYME [Suspect]
     Indication: GLYCOGEN STORAGE DISEASE TYPE II
     Dosage: 20 MG/KG Q2WKS IV
     Route: 042
     Dates: start: 20060628
  2. ALPHA-GLUCOSIDASE (HUMAN, RECOMBINANT, CHO CELLS, GENZYME) [Suspect]
     Indication: GLYCOGEN STORAGE DISEASE TYPE II
     Dosage: 20  MG/KG Q2WKS IV
     Route: 042
     Dates: start: 20051104, end: 20060614

REACTIONS (16)
  - ACUTE RESPIRATORY DISTRESS SYNDROME [None]
  - ATELECTASIS [None]
  - BACTERIAL CULTURE POSITIVE [None]
  - BRONCHIOLITIS [None]
  - HYPOTENSION [None]
  - HYPOVENTILATION [None]
  - KLEBSIELLA INFECTION [None]
  - LEFT VENTRICLE OUTFLOW TRACT OBSTRUCTION [None]
  - LISTLESS [None]
  - LOBAR PNEUMONIA [None]
  - PNEUMONITIS [None]
  - RESPIRATORY FAILURE [None]
  - RESPIRATORY SYNCYTIAL VIRUS INFECTION [None]
  - TACHYCARDIA [None]
  - TACHYPNOEA [None]
  - TRACHEITIS [None]
